FAERS Safety Report 7072372-3 (Version None)
Quarter: 2010Q4

REPORT INFORMATION
  Report Type: 
  Country: None (occurrence: None)
  Receive Date: 20101029
  Receipt Date: 20100302
  Transmission Date: 20110411
  Serious: Yes (Other)
  Sender: FDA-Public Use
  Company Number: A0839961A

PATIENT
  Age: 73 Year
  Sex: Male

DRUGS (7)
  1. ADVAIR DISKUS 100/50 [Suspect]
     Dosage: 1PUFF TWICE PER DAY
     Route: 055
     Dates: start: 20030801
  2. PROAIR HFA [Concomitant]
  3. FLUTICASONE NASAL SPRAY [Concomitant]
  4. VERAPAMIL [Concomitant]
  5. OMEPRAZOLE [Concomitant]
  6. SINGULAIR [Concomitant]
  7. SIMVASTATIN [Concomitant]

REACTIONS (3)
  - CHEST DISCOMFORT [None]
  - CHOKING [None]
  - PRODUCT QUALITY ISSUE [None]
